FAERS Safety Report 6877159-X (Version None)
Quarter: 2010Q3

REPORT INFORMATION
  Report Type: 
  Country: None (occurrence: None)
  Receive Date: 20100727
  Receipt Date: 20100714
  Transmission Date: 20110219
  Serious: Yes (Congenital Anomaly)
  Sender: FDA-Public Use
  Company Number: SE-WATSON-2010-09681

PATIENT

DRUGS (2)
  1. CORTISONE (WATSON LABORATORIES) [Suspect]
     Indication: ASTHMA
     Dosage: IV AND ORAL
     Route: 064
  2. BUDESONIDE [Suspect]
     Indication: ASTHMA
     Dosage: UNK
     Route: 064

REACTIONS (2)
  - PERIVENTRICULAR LEUKOMALACIA [None]
  - RETINOPATHY [None]
